FAERS Safety Report 5724887-5 (Version None)
Quarter: 2008Q2

REPORT INFORMATION
  Report Type: 
  Country: None (occurrence: None)
  Receive Date: 20080430
  Receipt Date: 20080430
  Transmission Date: 20081010
  Serious: Yes (Hospitalization)
  Sender: FDA-Public Use
  Company Number: None

PATIENT
  Sex: Male
  Weight: 105 kg

DRUGS (3)
  1. CYTARABINE [Suspect]
     Dosage: 2640 MG
     Dates: start: 20080314, end: 20080319
  2. DAUNORUBICIN HCL [Suspect]
     Dosage: 1000 MG
     Dates: end: 20080315
  3. ETOPOSIDE [Suspect]
     Dosage: 1100 MG
     Dates: end: 20080315

REACTIONS (9)
  - ATELECTASIS [None]
  - CARDIOMEGALY [None]
  - DYSPNOEA [None]
  - LUNG CONSOLIDATION [None]
  - PANCYTOPENIA [None]
  - PERICARDIAL EFFUSION [None]
  - PLEURAL EFFUSION [None]
  - TACHYCARDIA [None]
  - TACHYPNOEA [None]
